FAERS Safety Report 14116458 (Version 1)
Quarter: 2017Q4

REPORT INFORMATION
  Report Type: Spontaneous
  Country: GB (occurrence: GB)
  Receive Date: 20171023
  Receipt Date: 20171023
  Transmission Date: 20180321
  Serious: Yes (Hospitalization)
  Sender: FDA-Public Use
  Company Number: GB-TEVA-815737ACC

PATIENT
  Age: 73 Year
  Sex: Male

DRUGS (13)
  1. ATORVASTATIN [Concomitant]
     Active Substance: ATORVASTATIN
  2. DIAZEPAM. [Concomitant]
     Active Substance: DIAZEPAM
  3. SPIRONOLACTONE. [Suspect]
     Active Substance: SPIRONOLACTONE
  4. GLICLAZIDE [Concomitant]
     Active Substance: GLICLAZIDE
  5. SITAGLIPTIN [Concomitant]
     Active Substance: SITAGLIPTIN
  6. BUMETANIDE. [Suspect]
     Active Substance: BUMETANIDE
     Dosage: SUSPENDED ON ADMISSION.
  7. PERINDOPRIL ERBUMINE. [Suspect]
     Active Substance: PERINDOPRIL ERBUMINE
     Dosage: SUSPENDED ON ADMISSION.
  8. ASPIRIN. [Concomitant]
     Active Substance: ASPIRIN
  9. BECONASE AQ [Concomitant]
     Active Substance: BECLOMETHASONE DIPROPIONATE MONOHYDRATE
     Route: 044
  10. COCODAMOL [Concomitant]
     Active Substance: ACETAMINOPHEN\CODEINE PHOSPHATE
     Dosage: 30MG/500MG
  11. METFORMIN [Suspect]
     Active Substance: METFORMIN HYDROCHLORIDE
     Dosage: SUSPENDED ON ADMISSION.
  12. ALLOPURINOL. [Concomitant]
     Active Substance: ALLOPURINOL
  13. BISOPROLOL [Concomitant]
     Active Substance: BISOPROLOL

REACTIONS (1)
  - Acute kidney injury [Recovered/Resolved]

NARRATIVE: CASE EVENT DATE: 20170906
